FAERS Safety Report 15591357 (Version 1)
Quarter: 2018Q4

REPORT INFORMATION
  Report Type: Spontaneous
  Country: UY (occurrence: UY)
  Receive Date: 20181107
  Receipt Date: 20181107
  Transmission Date: 20190205
  Serious: Yes (Hospitalization)
  Sender: FDA-Public Use
  Company Number: UY-MYLANLABS-2018M1081149

PATIENT
  Age: 60 Year
  Sex: Female

DRUGS (2)
  1. DOXORUBICIN [Suspect]
     Active Substance: DOXORUBICIN
     Indication: BREAST CANCER
     Route: 065
  2. FUROSEMIDE. [Suspect]
     Active Substance: FUROSEMIDE
     Indication: CARDIAC FAILURE CONGESTIVE
     Route: 048

REACTIONS (6)
  - Dehydration [Recovering/Resolving]
  - Ischaemic hepatitis [Recovering/Resolving]
  - Cardiac failure congestive [Recovered/Resolved]
  - Acute kidney injury [Recovering/Resolving]
  - Hypotension [Recovering/Resolving]
  - Cardiomyopathy [Recovered/Resolved]
